FAERS Safety Report 8915691 (Version 2)
Quarter: 2013Q1

REPORT INFORMATION
  Report Type: Spontaneous
  Country: DK (occurrence: DE)
  Receive Date: 20121119
  Receipt Date: 20130325
  Transmission Date: 20140127
  Serious: Yes (Hospitalization, Congenital Anomaly)
  Sender: FDA-Public Use
  Company Number: DE-TEVA-367397ISR

PATIENT
  Sex: 0

DRUGS (6)
  1. RAMIPRIL [Suspect]
     Route: 065
  2. METFORMIN [Suspect]
     Route: 065
  3. METOPROLOL [Concomitant]
     Route: 065
  4. METHYLDOPA [Concomitant]
     Route: 065
  5. NOVORAPID [Concomitant]
     Route: 065
  6. PROTAPHANE [Concomitant]
     Indication: TYPE 2 DIABETES MELLITUS
     Route: 065

REACTIONS (3)
  - Heart disease congenital [Unknown]
  - Neonatal respiratory distress syndrome [Unknown]
  - Pregnancy [Unknown]
